FAERS Safety Report 11369531 (Version 1)
Quarter: 2015Q3

REPORT INFORMATION
  Report Type: Spontaneous
  Country: US (occurrence: None)
  Receive Date: 20150811
  Receipt Date: 20150811
  Transmission Date: 20151125
  Serious: Yes (Hospitalization)
  Sender: FDA-Public Use
  Company Number: None

PATIENT
  Age: 19 Year
  Sex: Male
  Weight: 83.6 kg

DRUGS (6)
  1. METHOTREXATE [Suspect]
     Active Substance: METHOTREXATE
     Dates: start: 20150619
  2. ONCASPAR [Suspect]
     Active Substance: PEGASPARGASE
     Dates: start: 20150702
  3. VINCRISTINE SULFATE. [Suspect]
     Active Substance: VINCRISTINE SULFATE
     Dates: start: 20150702
  4. CYCLOPHOSPHAMIDE. [Suspect]
     Active Substance: CYCLOPHOSPHAMIDE
     Dates: start: 20150619
  5. MERCAPTOPURINE. [Suspect]
     Active Substance: MERCAPTOPURINE
     Dates: start: 20150619, end: 20150629
  6. CYTARABINE. [Suspect]
     Active Substance: CYTARABINE
     Dates: start: 20150619, end: 20150622

REACTIONS (10)
  - Hyperhidrosis [None]
  - Nausea [None]
  - Blood pressure decreased [None]
  - Throat irritation [None]
  - Abdominal pain [None]
  - Blindness transient [None]
  - Deafness [None]
  - Pharyngeal oedema [None]
  - Throat tightness [None]
  - Vomiting [None]

NARRATIVE: CASE EVENT DATE: 20150806
